FAERS Safety Report 20371398 (Version 1)
Quarter: 2022Q1

REPORT INFORMATION
  Report Type: Report from Study
  Country: ES (occurrence: ES)
  Receive Date: 20220124
  Receipt Date: 20220124
  Transmission Date: 20220424
  Serious: Yes (Other)
  Sender: FDA-Public Use
  Company Number: ES-SA-SAC20220106000590

PATIENT
  Age: 77 Year
  Sex: Male
  Weight: 75 kg

DRUGS (2)
  1. METFORMIN [Suspect]
     Active Substance: METFORMIN HYDROCHLORIDE
     Indication: Type 2 diabetes mellitus
     Dosage: UNK, Q12H, (1-0-1, BID)
     Route: 048
  2. INSULIN GLARGINE [Suspect]
     Active Substance: INSULIN GLARGINE
     Indication: Type 2 diabetes mellitus
     Dosage: 12 IU, QD
     Route: 058
     Dates: start: 20191115

REACTIONS (6)
  - Haematochezia [Recovering/Resolving]
  - Colon neoplasm [Recovering/Resolving]
  - Blood glucose increased [Recovered/Resolved]
  - Blood iron decreased [Unknown]
  - Product dose omission issue [Unknown]
  - Product storage error [Unknown]
